FAERS Safety Report 8874390 (Version 3)
Quarter: 2013Q1

REPORT INFORMATION
  Report Type: Spontaneous
  Country: US (occurrence: US)
  Receive Date: 20121031
  Receipt Date: 20130225
  Transmission Date: 20140127
  Serious: No
  Sender: FDA-Public Use
  Company Number: US-BIOGENIDEC-2012BI047904

PATIENT
  Age: 32 None
  Sex: Female

DRUGS (1)
  1. TYSABRI [Suspect]
     Indication: MULTIPLE SCLEROSIS
     Route: 042
     Dates: start: 20081216, end: 20121220

REACTIONS (8)
  - Tooth erosion [Recovered/Resolved]
  - Tooth extraction [Unknown]
  - Amnesia [Not Recovered/Not Resolved]
  - Visual impairment [Not Recovered/Not Resolved]
  - Dental caries [Recovered/Resolved]
  - Tooth infection [Unknown]
  - Multiple sclerosis relapse [Recovered/Resolved]
  - Headache [Unknown]
